FAERS Safety Report 8189213-3 (Version None)
Quarter: 2012Q1

REPORT INFORMATION
  Report Type: 
  Country: None (occurrence: None)
  Receive Date: 20120306
  Receipt Date: 20120306
  Transmission Date: 20120608
  Serious: Yes (Hospitalization)
  Sender: FDA-Public Use
  Company Number: None

PATIENT
  Age: 64 Year
  Sex: Male

DRUGS (3)
  1. NEUPOGEN [Suspect]
  2. MOZOBIL [Suspect]
     Indication: MYELODYSPLASTIC SYNDROME
     Dosage: DAYS 1-5
     Dates: start: 20110704
  3. AZACITIDINE [Suspect]
     Indication: MYELODYSPLASTIC SYNDROME
     Dosage: DAYS 1-5
     Dates: start: 20110704

REACTIONS (3)
  - LEUKOPENIA [None]
  - LUNG INFILTRATION [None]
  - PNEUMONIA [None]
